FAERS Safety Report 23381929 (Version 1)
Quarter: 2024Q1

REPORT INFORMATION
  Report Type: Spontaneous
  Country: US (occurrence: None)
  Receive Date: 20240108
  Receipt Date: 20240108
  Transmission Date: 20240409
  Serious: No
  Sender: FDA-Public Use
  Company Number: None

PATIENT
  Sex: Female

DRUGS (2)
  1. BOSENTAN [Suspect]
     Active Substance: BOSENTAN
     Indication: Product used for unknown indication
     Dosage: 31.25MG TWICE A DAY BY MOUTH
     Route: 048
     Dates: start: 202312
  2. TRACLEER [Concomitant]

REACTIONS (1)
  - Product dispensing error [None]
